FAERS Safety Report 5920102-8 (Version None)
Quarter: 2008Q4

REPORT INFORMATION
  Report Type: 
  Country: None (occurrence: None)
  Receive Date: 20081015
  Receipt Date: 20081015
  Transmission Date: 20090506
  Serious: Yes (Life-Threatening, Other)
  Sender: FDA-Public Use
  Company Number: None

PATIENT
  Age: 40 Year
  Sex: Female
  Weight: 64.4108 kg

DRUGS (3)
  1. QVAR 40 [Suspect]
     Indication: ASTHMA
     Dosage: 2 PUFFS 2 TIMES A DAY INHAL
     Route: 055
     Dates: start: 20081005, end: 20081006
  2. ALBUTERAL SULFATE NEUBILZER [Concomitant]
  3. ALBUTEROL SULFATE AUTOHALER [Concomitant]

REACTIONS (10)
  - BRONCHOSPASM [None]
  - DYSPNOEA [None]
  - FACE OEDEMA [None]
  - LIP OEDEMA [None]
  - LUNG DISORDER [None]
  - MEDICATION ERROR [None]
  - OEDEMA MOUTH [None]
  - PAIN [None]
  - THROAT IRRITATION [None]
  - TONGUE OEDEMA [None]
